FAERS Safety Report 9969572 (Version 1)
Quarter: 2014Q1

REPORT INFORMATION
  Report Type: Report from Study
  Country: US (occurrence: US)
  Receive Date: 20140306
  Receipt Date: 20140306
  Transmission Date: 20141002
  Serious: Yes (Other)
  Sender: FDA-Public Use
  Company Number: US-ROCHE-1332088

PATIENT
  Age: 36 Year
  Sex: Female

DRUGS (4)
  1. LUCENTIS [Suspect]
     Indication: DIABETIC RETINAL OEDEMA
     Route: 050
  2. ZYMAR [Concomitant]
  3. AKTEN [Concomitant]
  4. PEPCID [Concomitant]

REACTIONS (11)
  - Nephropathy [Unknown]
  - Vision blurred [Unknown]
  - Visual acuity reduced [Unknown]
  - Blood glucose decreased [Unknown]
  - Haematemesis [Unknown]
  - Hypertension [Unknown]
  - Vitreous haemorrhage [Unknown]
  - Cystoid macular oedema [Unknown]
  - Visual acuity reduced [Unknown]
  - Dyspnoea [Unknown]
  - Pelvic fracture [Unknown]
